FAERS Safety Report 11323650 (Version 1)
Quarter: 2015Q3

REPORT INFORMATION
  Report Type: Spontaneous
  Country: DK (occurrence: DK)
  Receive Date: 20150730
  Receipt Date: 20150730
  Transmission Date: 20151125
  Serious: Yes (Hospitalization)
  Sender: FDA-Public Use
  Company Number: DK-TEVA-581534ISR

PATIENT
  Age: 70 Year
  Sex: Female

DRUGS (8)
  1. ANTABUSE [Concomitant]
     Active Substance: DISULFIRAM
     Indication: ALCOHOL ABUSE
     Route: 048
     Dates: start: 201502
  2. FORMO EASYHALER [Concomitant]
     Indication: PRODUCT USED FOR UNKNOWN INDICATION
  3. NITROFURANTOIN. [Concomitant]
     Active Substance: NITROFURANTOIN
     Indication: PRODUCT USED FOR UNKNOWN INDICATION
     Dates: start: 2012
  4. CENTYL MED KALIUMKLORID [Concomitant]
     Active Substance: BENDROFLUMETHIAZIDE\POTASSIUM CHLORIDE
     Indication: PRODUCT USED FOR UNKNOWN INDICATION
     Dates: start: 2010
  5. METOPROLOL [Concomitant]
     Active Substance: METOPROLOL
     Indication: PRODUCT USED FOR UNKNOWN INDICATION
     Dates: start: 2005
  6. GABARATIO [Suspect]
     Active Substance: GABAPENTIN
     Indication: NEUROPATHY PERIPHERAL
     Dosage: STRENGTH: 300MG . UNKNOWN DOSE .
     Route: 048
     Dates: start: 201505, end: 201505
  7. BUVENTOL EASYHALER [Concomitant]
     Indication: PRODUCT USED FOR UNKNOWN INDICATION
  8. MIRTAZAPIN [Concomitant]
     Active Substance: MIRTAZAPINE
     Indication: PRODUCT USED FOR UNKNOWN INDICATION

REACTIONS (7)
  - Abdominal distension [Recovering/Resolving]
  - Generalised erythema [Recovering/Resolving]
  - Mouth swelling [Recovering/Resolving]
  - Pruritus generalised [Recovering/Resolving]
  - Rash generalised [Recovering/Resolving]
  - Skin exfoliation [Recovering/Resolving]
  - Swelling [Recovering/Resolving]

NARRATIVE: CASE EVENT DATE: 201505
